FAERS Safety Report 6509952-7 (Version None)
Quarter: 2009Q4

REPORT INFORMATION
  Report Type: 
  Country: None (occurrence: None)
  Receive Date: 20091222
  Receipt Date: 20091218
  Transmission Date: 20100525
  Serious: Yes (Death, Hospitalization)
  Sender: FDA-Public Use
  Company Number: PHEH2009US17554

PATIENT
  Sex: Male

DRUGS (8)
  1. TASIGNA [Suspect]
     Indication: GASTROINTESTINAL STROMAL TUMOUR
     Dosage: 400 MG, BID
     Route: 048
     Dates: start: 20090207, end: 20090827
  2. AMLODIPINE [Concomitant]
     Dosage: 5 MG, QD
     Route: 065
  3. FINASTERIDE [Concomitant]
     Dosage: 5 MG, UNK
  4. TERAZOSIN HCL [Concomitant]
     Dosage: 2 MG, QD
     Route: 065
  5. COLACE [Concomitant]
     Dosage: UNK, UNK
     Route: 065
  6. PERCOCET [Concomitant]
     Dosage: 5/325 MG, QD
  7. IBUPROFEN [Concomitant]
     Indication: ARTHRITIS
     Dosage: 400 MG, TID PRN ARTHRITIS
  8. FAMOTIDINE [Concomitant]
     Dosage: 200 MG, QD

REACTIONS (1)
  - MALIGNANT NEOPLASM PROGRESSION [None]
